FAERS Safety Report 9892732 (Version 2)
Quarter: 2014Q2

REPORT INFORMATION
  Report Type: Spontaneous
  Country: US (occurrence: US)
  Receive Date: 20140212
  Receipt Date: 20140403
  Transmission Date: 20141212
  Serious: No
  Sender: FDA-Public Use
  Company Number: US-009507513-1402USA000973

PATIENT
  Sex: Male

DRUGS (3)
  1. VICTRELIS [Suspect]
     Indication: CHRONIC HEPATITIS C
     Dosage: STARTED ON WEEK 5 FOR 24 WEEKS INITIAL LENGHT OF TREATMENT
     Route: 048
  2. PEGASYS [Suspect]
     Indication: CHRONIC HEPATITIS C
     Dosage: 180 MICROGRAM, QW
     Route: 058
     Dates: start: 20130926
  3. RIBASPHERE [Suspect]
     Indication: CHRONIC HEPATITIS C
     Dosage: 1200 MG DAILY IN DIVIDED DOSES
     Route: 048
     Dates: start: 20130926

REACTIONS (3)
  - Nasopharyngitis [Unknown]
  - Red blood cell abnormality [Unknown]
  - Injection site pruritus [Unknown]
